FAERS Safety Report 23657642 (Version 2)
Quarter: 2024Q1

REPORT INFORMATION
  Report Type: Spontaneous
  Country: JP (occurrence: None)
  Receive Date: 20240321
  Receipt Date: 20240329
  Transmission Date: 20240410
  Serious: Yes (Death)
  Sender: FDA-Public Use
  Company Number: 2024A066839

PATIENT
  Age: 83 Year

DRUGS (2)
  1. ONDEXXYA [Suspect]
     Active Substance: ANDEXANET ALFA
     Indication: Subarachnoid haemorrhage
     Dosage: 400 MG IV AT 30 MG/MIN FOLLOWED BY 480 MG IV AT 4 MG/MIN FOR 2HRS
     Route: 042
     Dates: start: 20240313, end: 20240313
  2. ELIQUIS [Suspect]
     Active Substance: APIXABAN
     Dosage: DOSE UNKNOWN
     Route: 042

REACTIONS (2)
  - Subarachnoid haemorrhage [Fatal]
  - Artery dissection [Fatal]

NARRATIVE: CASE EVENT DATE: 20240313
